FAERS Safety Report 6351265-0 (Version None)
Quarter: 2009Q3

REPORT INFORMATION
  Report Type: 
  Country: None (occurrence: None)
  Receive Date: 20090912
  Receipt Date: 20090622
  Transmission Date: 20100115
  Serious: No
  Sender: FDA-Public Use
  Company Number: US-ABBOTT-07P-163-0415122-00

PATIENT
  Sex: Female
  Weight: 125.5 kg

DRUGS (2)
  1. HUMIRA [Suspect]
     Indication: CROHN'S DISEASE
     Route: 058
     Dates: start: 20070803, end: 20070803
  2. HUMIRA [Suspect]
     Route: 058
     Dates: start: 20070817, end: 20070817

REACTIONS (2)
  - INCORRECT DOSE ADMINISTERED [None]
  - STAPHYLOCOCCAL INFECTION [None]
